FAERS Safety Report 15379252 (Version 1)
Quarter: 2018Q3

REPORT INFORMATION
  Report Type: Report from Study
  Country: BD (occurrence: BD)
  Receive Date: 20180913
  Receipt Date: 20180913
  Transmission Date: 20181010
  Serious: Yes (Other)
  Sender: FDA-Public Use
  Company Number: BD-SA-2018SA246960

PATIENT
  Age: 40 Year
  Sex: Female

DRUGS (1)
  1. INSULIN GLARGINE [Suspect]
     Active Substance: INSULIN GLARGINE
     Dosage: UNK
     Dates: start: 20150812

REACTIONS (12)
  - Haemorrhage [Unknown]
  - Hypoglycaemia [Unknown]
  - Malaise [Unknown]
  - Asthenia [Unknown]
  - Hypotension [Unknown]
  - Body temperature increased [Unknown]
  - Gastrointestinal disorder [Unknown]
  - Abdominal discomfort [Unknown]
  - Blood glucose decreased [Unknown]
  - Diarrhoea [Unknown]
  - Restlessness [Unknown]
  - Hyperhidrosis [Unknown]
